FAERS Safety Report 15584290 (Version 3)
Quarter: 2020Q3

REPORT INFORMATION
  Report Type: Spontaneous
  Country: US (occurrence: US)
  Receive Date: 20181105
  Receipt Date: 20200821
  Transmission Date: 20201102
  Serious: Yes (Other)
  Sender: FDA-Public Use
  Company Number: US-SA-2018SA301315

PATIENT

DRUGS (4)
  1. ALDURAZYME [Suspect]
     Active Substance: LARONIDASE
     Dosage: 20 MG, QW
     Route: 041
  2. ALDURAZYME [Suspect]
     Active Substance: LARONIDASE
     Indication: MUCOPOLYSACCHARIDOSIS I
     Dosage: 0.59 MG/KG, QW
     Route: 041
  3. ALDURAZYME [Suspect]
     Active Substance: LARONIDASE
     Dosage: 20 MG, QW
     Route: 041
  4. ALDURAZYME [Suspect]
     Active Substance: LARONIDASE
     Indication: MUCOPOLYSACCHARIDOSIS II
     Dosage: 0.59 MG/KG, QW
     Route: 041
     Dates: start: 201706

REACTIONS (2)
  - Chills [Recovered/Resolved]
  - Pyrexia [Unknown]

NARRATIVE: CASE EVENT DATE: 20180929
